FAERS Safety Report 12447300 (Version 1)
Quarter: 2016Q2

REPORT INFORMATION
  Report Type: Spontaneous
  Country: US (occurrence: None)
  Receive Date: 20160607
  Receipt Date: 20160607
  Transmission Date: 20160815
  Serious: Yes (Hospitalization)
  Sender: FDA-Public Use
  Company Number: None

PATIENT
  Age: 49 Year
  Sex: Female
  Weight: 69.2 kg

DRUGS (12)
  1. PASIREOTIDE, 60MG NOVARTIS [Suspect]
     Active Substance: PASIREOTIDE
     Indication: POLYCYSTIC LIVER DISEASE
     Dosage: 60 MG EVERY 28 DAYS INTRAMUSCULAR
     Route: 030
     Dates: start: 20141021, end: 20160502
  2. BEANO [Concomitant]
     Active Substance: ASPERGILLUS NIGER .ALPHA.-GALACTOSIDASE
  3. TUMS [Concomitant]
     Active Substance: CALCIUM CARBONATE
  4. FEXOFENADINE [Concomitant]
     Active Substance: FEXOFENADINE\FEXOFENADINE HYDROCHLORIDE
  5. HFA AEROSOL [Concomitant]
  6. SYMBICORT HFA [Concomitant]
  7. FERROUS SULFATE. [Concomitant]
     Active Substance: FERROUS SULFATE
  8. PROAIR HFA [Concomitant]
     Active Substance: ALBUTEROL SULFATE
  9. LEVOTHYROXINE. [Concomitant]
     Active Substance: LEVOTHYROXINE
  10. NEXIUM [Concomitant]
     Active Substance: ESOMEPRAZOLE MAGNESIUM
  11. RESEARCH SOM230/PASIREOTIDE [Concomitant]
  12. MULTIVITAMIN [Concomitant]
     Active Substance: VITAMINS

REACTIONS (7)
  - Klebsiella bacteraemia [None]
  - Nausea [None]
  - Hypotension [None]
  - Chills [None]
  - Infected cyst [None]
  - Colitis [None]
  - Body temperature increased [None]

NARRATIVE: CASE EVENT DATE: 20160527
